FAERS Safety Report 6923581-2 (Version None)
Quarter: 2010Q3

REPORT INFORMATION
  Report Type: 
  Country: None (occurrence: None)
  Receive Date: 20100813
  Receipt Date: 20100803
  Transmission Date: 20110219
  Serious: Yes (Hospitalization)
  Sender: FDA-Public Use
  Company Number: A0875314A

PATIENT
  Age: 66 Year
  Sex: Male

DRUGS (1)
  1. AVANDIA [Suspect]
     Route: 048
     Dates: start: 20050101, end: 20071001

REACTIONS (4)
  - BRAIN INJURY [None]
  - CARDIAC FAILURE CONGESTIVE [None]
  - ISCHAEMIC STROKE [None]
  - PARALYSIS [None]
